FAERS Safety Report 4974470-4 (Version None)
Quarter: 2006Q1

REPORT INFORMATION
  Report Type: 
  Country: None (occurrence: None)
  Receive Date: 20060227
  Receipt Date: 20051122
  Transmission Date: 20060701
  Serious: No
  Sender: FDA-Public Use
  Company Number: PHEH2005US11308

PATIENT
  Age: 81 Year
  Sex: Female
  Weight: 48.1 kg

DRUGS (6)
  1. ENABLEX [Suspect]
     Dosage: 7.5 MG, QD
     Dates: start: 20050926, end: 20050929
  2. LEVOXYL [Concomitant]
  3. SPIRIVA [Concomitant]
  4. HUMIRA [Concomitant]
  5. CELEBREX [Concomitant]
  6. BENICAR HCT (HYDROCHLOROTHIAZIDE, OLMESARTAN MEDOXOMIL) [Concomitant]

REACTIONS (5)
  - DERMATITIS [None]
  - RASH [None]
  - SKIN DISCOLOURATION [None]
  - SKIN EXFOLIATION [None]
  - SWELLING FACE [None]
